FAERS Safety Report 9025878 (Version 2)
Quarter: 2013Q1

REPORT INFORMATION
  Report Type: Spontaneous
  Country: IT (occurrence: IT)
  Receive Date: 20130122
  Receipt Date: 20130322
  Transmission Date: 20140127
  Serious: Yes (Hospitalization)
  Sender: FDA-Public Use
  Company Number: IT-ROCHE-1181386

PATIENT
  Age: 51 Year
  Sex: Male

DRUGS (3)
  1. PEGASYS [Suspect]
     Indication: HEPATIC CIRRHOSIS
     Route: 058
     Dates: start: 20110707, end: 20120123
  2. COPEGUS [Concomitant]
  3. ALDACTONE [Concomitant]

REACTIONS (4)
  - Diabetes mellitus [Recovered/Resolved with Sequelae]
  - Diabetic hyperglycaemic coma [Recovered/Resolved with Sequelae]
  - Hypokalaemia [Recovered/Resolved with Sequelae]
  - Hyponatraemic syndrome [Recovered/Resolved with Sequelae]
